FAERS Safety Report 21565141 (Version 1)
Quarter: 2022Q4

REPORT INFORMATION
  Report Type: Report from Study
  Country: US (occurrence: US)
  Receive Date: 20221108
  Receipt Date: 20221108
  Transmission Date: 20230112
  Serious: No
  Sender: FDA-Public Use
  Company Number: US-ABBVIE-22K-163-4450448-00

PATIENT
  Sex: Male

DRUGS (3)
  1. HUMIRA [Suspect]
     Active Substance: ADALIMUMAB
     Indication: Colitis ulcerative
     Dosage: TIME INTERVAL: 1 TOTAL: DAY 1
     Route: 058
     Dates: start: 20210921, end: 20210921
  2. HUMIRA [Suspect]
     Active Substance: ADALIMUMAB
     Dosage: TIME INTERVAL: 1 TOTAL: DAY 15
     Route: 058
     Dates: start: 20211005, end: 20211005
  3. HUMIRA [Suspect]
     Active Substance: ADALIMUMAB
     Dosage: DAY 29
     Route: 058
     Dates: start: 20211019

REACTIONS (11)
  - Insomnia [Recovering/Resolving]
  - COVID-19 [Unknown]
  - Colitis ulcerative [Not Recovered/Not Resolved]
  - Depressed mood [Recovering/Resolving]
  - Anaemia [Recovering/Resolving]
  - Asthenia [Recovering/Resolving]
  - Decreased appetite [Recovering/Resolving]
  - Anxiety [Recovering/Resolving]
  - Arthralgia [Recovering/Resolving]
  - Malaise [Recovering/Resolving]
  - Mucous stools [Recovering/Resolving]

NARRATIVE: CASE EVENT DATE: 20220101
